FAERS Safety Report 15351231 (Version 3)
Quarter: 2018Q3

REPORT INFORMATION
  Report Type: Spontaneous
  Country: US (occurrence: US)
  Receive Date: 20180905
  Receipt Date: 20180912
  Transmission Date: 20181010
  Serious: Yes (Other)
  Sender: FDA-Public Use
  Company Number: US-PFIZER INC-2018356722

PATIENT
  Age: 103 Year
  Sex: Female
  Weight: 50.35 kg

DRUGS (2)
  1. PANTOPRAZOLE [Suspect]
     Active Substance: PANTOPRAZOLE
     Indication: IRRITABLE BOWEL SYNDROME
  2. PANTOPRAZOLE [Suspect]
     Active Substance: PANTOPRAZOLE
     Indication: GASTROOESOPHAGEAL REFLUX DISEASE
     Dosage: 20 MG, 1X/DAY (20MG 1 TABLET BY MY MOUTH ONCE A DAY)
     Route: 048

REACTIONS (6)
  - Infection [Unknown]
  - Throat irritation [Recovering/Resolving]
  - Depression [Unknown]
  - Atrial fibrillation [Unknown]
  - Heart rate decreased [Unknown]
  - Poor quality sleep [Unknown]
